FAERS Safety Report 7299547-2 (Version None)
Quarter: 2010Q4

REPORT INFORMATION
  Report Type: 
  Country: None (occurrence: None)
  Receive Date: 20101223
  Receipt Date: 20101201
  Transmission Date: 20110411
  Serious: Yes (Hospitalization)
  Sender: FDA-Public Use
  Company Number: 313859

PATIENT
  Age: 58 Year
  Sex: Female
  Weight: 129.3 kg

DRUGS (3)
  1. LEVEMIR [Suspect]
     Indication: TYPE 2 DIABETES MELLITUS
     Dosage: 40 U, QD, SUBCUTANEOUS, 10 U, QD, SUBCUTANEOUS
     Route: 058
     Dates: start: 20100819, end: 20100801
  2. LEVEMIR [Suspect]
     Indication: TYPE 2 DIABETES MELLITUS
     Dosage: 40 U, QD, SUBCUTANEOUS, 10 U, QD, SUBCUTANEOUS
     Route: 058
     Dates: start: 20100801, end: 20100822
  3. VICTOZA [Concomitant]

REACTIONS (6)
  - ANAPHYLACTIC REACTION [None]
  - INJECTION SITE ERYTHEMA [None]
  - INJECTION SITE NODULE [None]
  - INJECTION SITE PAIN [None]
  - INJECTION SITE SWELLING [None]
  - INJECTION SITE WARMTH [None]
